FAERS Safety Report 7517451-9 (Version None)
Quarter: 2011Q2

REPORT INFORMATION
  Report Type: 
  Country: None (occurrence: None)
  Receive Date: 20110601
  Receipt Date: 20110114
  Transmission Date: 20111010
  Serious: Yes (Other)
  Sender: FDA-Public Use
  Company Number: US-BAYER-201018018NA

PATIENT
  Age: 48 Year
  Sex: Female
  Weight: 92 kg

DRUGS (18)
  1. MAGNEVIST [Suspect]
     Dates: start: 20060620, end: 20060620
  2. SODIUM BICARBONATE [Concomitant]
  3. NEPHROCAPS [Concomitant]
     Dosage: ONCE DAILY
  4. MAGNEVIST [Suspect]
     Dates: start: 20070112, end: 20070112
  5. CALCIUM [CALCIUM] [Concomitant]
  6. ZOLOFT [Concomitant]
  7. MAGNEVIST [Suspect]
     Indication: ANGIOGRAM
     Dosage: 30 ML, ONCE
     Dates: start: 20031117, end: 20031117
  8. MAGNEVIST [Suspect]
     Dosage: 30 ML, ONCE
     Dates: start: 20040112, end: 20040112
  9. MAGNEVIST [Suspect]
     Indication: NUCLEAR MAGNETIC RESONANCE IMAGING ABDOMINAL
     Dates: start: 20060113, end: 20060113
  10. PHOSLO [Concomitant]
     Dosage: 1337 MG THREE TIMES A DAY WITH MEALS
  11. MAGNEVIST [Suspect]
     Dates: start: 20070503, end: 20070503
  12. PLAVIX [Concomitant]
     Dosage: 75 MG ONCE A DAY
  13. VANCOMYCIN [Concomitant]
  14. DULCOLAX [Concomitant]
  15. REQUIP [Concomitant]
  16. ASPIRIN [Concomitant]
     Dosage: 325 MG EVERY MORNING
  17. RENAPHRO [Concomitant]
  18. PERCOCET [Concomitant]

REACTIONS (11)
  - GENERAL PHYSICAL HEALTH DETERIORATION [None]
  - MOBILITY DECREASED [None]
  - SKIN TIGHTNESS [None]
  - NEPHROGENIC SYSTEMIC FIBROSIS [None]
  - DEFORMITY [None]
  - OEDEMA PERIPHERAL [None]
  - PAIN [None]
  - PAIN IN EXTREMITY [None]
  - WHEELCHAIR USER [None]
  - SKIN INDURATION [None]
  - SKIN HYPERPIGMENTATION [None]
